FAERS Safety Report 24283672 (Version 1)
Quarter: 2024Q3

REPORT INFORMATION
  Report Type: Report from Study
  Country: CA (occurrence: CA)
  Receive Date: 20240904
  Receipt Date: 20240904
  Transmission Date: 20241016
  Serious: Yes (Death)
  Sender: ABBVIE
  Company Number: CA-ABBVIE-5905939

PATIENT
  Sex: Male

DRUGS (1)
  1. VENCLEXTA [Suspect]
     Active Substance: VENETOCLAX
     Indication: Acute myeloid leukaemia
     Dosage: FORM STRENGTH: 100 MILLIGRAM?20MG DAILY X 7DAYS, 50MG DAILY X 7 DAYS, 100MG DAILY X 7 DAYS, 200MG...
     Route: 048
     Dates: start: 20221129

REACTIONS (1)
  - Death [Fatal]
